FAERS Safety Report 8854777 (Version 2)
Quarter: 2012Q4

REPORT INFORMATION
  Report Type: 
  Country: US (occurrence: US)
  Receive Date: 20121023
  Receipt Date: 20121101
  Transmission Date: 20130627
  Serious: Yes (Death, Other)
  Sender: FDA-Public Use
  Company Number: US-BAYER-2012-108934

PATIENT
  Age: 83 Year
  Sex: Female

DRUGS (3)
  1. XARELTO [Suspect]
     Indication: CEREBROVASCULAR ACCIDENT PROPHYLAXIS
     Route: 065
  2. XARELTO [Interacting]
     Indication: ATRIAL FIBRILLATION
  3. ACETYLSALICYLIC ACID (} 100 MG) [Interacting]
     Dosage: UNK

REACTIONS (6)
  - Subdural haematoma [Fatal]
  - Fall [Unknown]
  - Brain midline shift [None]
  - Subarachnoid haemorrhage [None]
  - Skull fractured base [None]
  - Pupil fixed [None]
